FAERS Safety Report 5512837-6 (Version None)
Quarter: 2007Q4

REPORT INFORMATION
  Report Type: 
  Country: None (occurrence: None)
  Receive Date: 20071108
  Receipt Date: 20071108
  Transmission Date: 20080405
  Serious: Yes (Other)
  Sender: FDA-Public Use
  Company Number: None

PATIENT
  Age: 85 Year
  Sex: Male
  Weight: 61.6 kg

DRUGS (1)
  1. ASPIRIN [Suspect]

REACTIONS (1)
  - HAEMORRHAGE [None]
